FAERS Safety Report 21695024 (Version 1)
Quarter: 2022Q4

REPORT INFORMATION
  Report Type: Spontaneous
  Country: US (occurrence: None)
  Receive Date: 20221207
  Receipt Date: 20221207
  Transmission Date: 20230113
  Serious: No
  Sender: FDA-Public Use
  Company Number: 2022A384139

PATIENT
  Age: 30319 Day
  Sex: Male
  Weight: 88.9 kg

DRUGS (1)
  1. BRILINTA [Suspect]
     Active Substance: TICAGRELOR
     Indication: Stent placement
     Route: 048
     Dates: start: 20220310

REACTIONS (2)
  - Tooth abscess [Unknown]
  - Product use issue [Unknown]

NARRATIVE: CASE EVENT DATE: 20220310
